FAERS Safety Report 20009939 (Version 2)
Quarter: 2022Q1

REPORT INFORMATION
  Report Type: Spontaneous
  Country: DE (occurrence: DE)
  Receive Date: 20211028
  Receipt Date: 20220107
  Transmission Date: 20220424
  Serious: Yes (Hospitalization, Other)
  Sender: FDA-Public Use
  Company Number: DE-PFIZER INC-202101454295

PATIENT
  Age: 30 Year
  Sex: Female

DRUGS (6)
  1. INFLIXIMAB [Suspect]
     Active Substance: INFLIXIMAB
     Dosage: 700 MG
     Route: 065
     Dates: start: 20210928
  2. INFLIXIMAB [Suspect]
     Active Substance: INFLIXIMAB
     Dosage: 360
     Route: 065
     Dates: start: 20211026
  3. ASACOL [Concomitant]
     Active Substance: MESALAMINE
     Dosage: 720 MG, Q DAILY
     Route: 065
     Dates: start: 20200721
  4. MESALAMINE [Concomitant]
     Active Substance: MESALAMINE
     Dosage: UNK
     Dates: start: 20190725
  5. BUDESONIDE [Concomitant]
     Active Substance: BUDESONIDE
     Dosage: UNK
     Dates: start: 20210920, end: 20211004
  6. AZATHIOPRINE [Concomitant]
     Active Substance: AZATHIOPRINE
     Dosage: UNK
     Dates: start: 20201109

REACTIONS (4)
  - Maternal exposure during pregnancy [Unknown]
  - Abdominal pain [Not Recovered/Not Resolved]
  - COVID-19 [Unknown]
  - Pyrexia [Unknown]

NARRATIVE: CASE EVENT DATE: 20211010
